FAERS Safety Report 9188570 (Version 2)
Quarter: 2013Q1

REPORT INFORMATION
  Report Type: Spontaneous
  Country: US (occurrence: US)
  Receive Date: 20130325
  Receipt Date: 20130326
  Transmission Date: 20140127
  Serious: Yes (Life-Threatening, Hospitalization)
  Sender: FDA-Public Use
  Company Number: US-BRACCO-008790

PATIENT
  Age: 42 Year
  Sex: Female
  Weight: 75 kg

DRUGS (2)
  1. MULTIHANCE [Suspect]
     Indication: NUCLEAR MAGNETIC RESONANCE IMAGING
     Route: 042
     Dates: start: 20121106, end: 20121106
  2. MULTIHANCE [Suspect]
     Indication: ADRENAL CYST
     Route: 042
     Dates: start: 20121106, end: 20121106

REACTIONS (2)
  - Pneumonia [Unknown]
  - Anaphylactic shock [Recovering/Resolving]
